FAERS Safety Report 4403941-4 (Version None)
Quarter: 2004Q3

REPORT INFORMATION
  Report Type: 
  Country: None (occurrence: None)
  Receive Date: 20040719
  Receipt Date: 20040706
  Transmission Date: 20050211
  Serious: Yes (Other)
  Sender: FDA-Public Use
  Company Number: GB-JNJFOC-20040701270

PATIENT
  Sex: Female

DRUGS (2)
  1. RISPERDAL [Suspect]
  2. VENLAFAXINE XL (VENLAFAXINE) [Concomitant]

REACTIONS (2)
  - ANAEMIA [None]
  - PLATELET COUNT DECREASED [None]
